FAERS Safety Report 15227661 (Version 2)
Quarter: 2018Q3

REPORT INFORMATION
  Report Type: Report from Study
  Country: US (occurrence: US)
  Receive Date: 20180801
  Receipt Date: 20180905
  Transmission Date: 20181010
  Serious: Yes (Other)
  Sender: FDA-Public Use
  Company Number: US-JNJFOC-20180734805

PATIENT
  Sex: Female

DRUGS (1)
  1. STELARA [Suspect]
     Active Substance: USTEKINUMAB
     Indication: CROHN^S DISEASE
     Route: 042
     Dates: start: 201805

REACTIONS (6)
  - Upper respiratory tract congestion [Unknown]
  - Abdominal pain upper [Unknown]
  - Vomiting [Unknown]
  - Postoperative wound infection [Unknown]
  - Nausea [Unknown]
  - Knee operation [Unknown]

NARRATIVE: CASE EVENT DATE: 2018
